FAERS Safety Report 7994758-2 (Version None)
Quarter: 2011Q4

REPORT INFORMATION
  Report Type: 
  Country: None (occurrence: None)
  Receive Date: 20111220
  Receipt Date: 20111215
  Transmission Date: 20120403
  Serious: Yes (Other)
  Sender: FDA-Public Use
  Company Number: GB-PFIZER INC-2011306176

PATIENT
  Sex: Male

DRUGS (1)
  1. INSPRA [Suspect]
     Indication: MYOCARDIAL ISCHAEMIA
     Dosage: 2.5 MG, UNK
     Dates: start: 20110701, end: 20111206

REACTIONS (8)
  - PLATELET COUNT DECREASED [None]
  - GLOMERULAR FILTRATION RATE DECREASED [None]
  - DYSPNOEA [None]
  - CARDIAC PACEMAKER INSERTION [None]
  - DIZZINESS [None]
  - BLOOD CREATININE INCREASED [None]
  - BLOOD POTASSIUM INCREASED [None]
  - NAUSEA [None]
